FAERS Safety Report 6064398-3 (Version None)
Quarter: 2009Q1

REPORT INFORMATION
  Report Type: 
  Country: None (occurrence: None)
  Receive Date: 20090203
  Receipt Date: 20090203
  Transmission Date: 20090719
  Serious: No
  Sender: FDA-Public Use
  Company Number: None

PATIENT
  Age: 46 Year
  Sex: Male
  Weight: 72 kg

DRUGS (1)
  1. PACLITAXEL [Suspect]
     Dosage: 293 MG ONCE IV
     Route: 042
     Dates: start: 20090130, end: 20090130

REACTIONS (3)
  - DIZZINESS [None]
  - DYSPNOEA [None]
  - FLUSHING [None]
